FAERS Safety Report 11276383 (Version 1)
Quarter: 2015Q2

REPORT INFORMATION
  Report Type: Spontaneous
  Country: US (occurrence: None)
  Receive Date: 20150625
  Receipt Date: 20150625
  Transmission Date: 20150821
  Serious: No
  Sender: FDA-Public Use
  Company Number: A-NJ2015-115714

PATIENT
  Age: 75 Year
  Sex: Female

DRUGS (1)
  1. OPSUMIT [Suspect]
     Active Substance: MACITENTAN
     Indication: PULMONARY ARTERIAL HYPERTENSION
     Route: 048
     Dates: start: 201502

REACTIONS (7)
  - Skin disorder [None]
  - Pruritus [None]
  - Vomiting [None]
  - Feeling hot [None]
  - Chills [None]
  - Pyrexia [None]
  - Influenza [None]

NARRATIVE: CASE EVENT DATE: 201503
